FAERS Safety Report 16219031 (Version 3)
Quarter: 2019Q2

REPORT INFORMATION
  Report Type: Report from Study
  Country: JP (occurrence: JP)
  Receive Date: 20190419
  Receipt Date: 20190610
  Transmission Date: 20190711
  Serious: Yes (Other)
  Sender: FDA-Public Use
  Company Number: JP-BIOGEN-2018BI00631359

PATIENT
  Age: 38 Year
  Sex: Female
  Weight: 60.5 kg

DRUGS (7)
  1. TECFIDERA [Suspect]
     Active Substance: DIMETHYL FUMARATE
     Route: 050
     Dates: start: 20170905, end: 20180821
  2. LANSOPRAZOLE. [Concomitant]
     Active Substance: LANSOPRAZOLE
     Indication: PROPHYLAXIS AGAINST GASTROINTESTINAL ULCER
     Route: 050
     Dates: start: 20170816, end: 20170818
  3. RINDERON V [Concomitant]
     Active Substance: BETAMETHASONE VALERATE
     Indication: PRURITUS GENERALISED
     Route: 050
     Dates: start: 20170405, end: 20171115
  4. TECFIDERA [Suspect]
     Active Substance: DIMETHYL FUMARATE
     Indication: RELAPSING-REMITTING MULTIPLE SCLEROSIS
     Route: 050
     Dates: start: 20170405, end: 20170815
  5. ALDOMET [Concomitant]
     Active Substance: METHYLDOPA
     Indication: HYPERTENSION
     Route: 050
  6. TECFIDERA [Suspect]
     Active Substance: DIMETHYL FUMARATE
     Dosage: 120/240MG
     Route: 050
     Dates: start: 20170816, end: 20170904
  7. DECADRON [Concomitant]
     Active Substance: DEXAMETHASONE
     Indication: RELAPSING-REMITTING MULTIPLE SCLEROSIS
     Dates: start: 20170816, end: 20170818

REACTIONS (4)
  - Maternal exposure during pregnancy [Unknown]
  - Pruritus generalised [Unknown]
  - Abortion induced [Unknown]
  - Multiple sclerosis relapse [Recovered/Resolved]

NARRATIVE: CASE EVENT DATE: 20180919
